FAERS Safety Report 24098217 (Version 2)
Quarter: 2024Q3

REPORT INFORMATION
  Report Type: Spontaneous
  Country: GB (occurrence: GB)
  Receive Date: 20240716
  Receipt Date: 20240724
  Transmission Date: 20241016
  Serious: Yes (Other)
  Sender: TEVA
  Company Number: GB-MHRA-TPP46530759C7377238YC1720525998361

PATIENT
  Age: 89 Year
  Sex: Female
  Weight: 57 kg

DRUGS (8)
  1. PROPRANOLOL [Suspect]
     Active Substance: PROPRANOLOL HYDROCHLORIDE
     Indication: Anxiety
     Dosage: TIME INTERVAL: 0.33333333 DAYS: TAKE ONE 3 TIMES/DAY AS NECESSARY, DURATION: 46 DAYS
     Route: 048
     Dates: start: 20240520, end: 20240704
  2. COCODAMOL [Concomitant]
     Active Substance: ACETAMINOPHEN\CODEINE PHOSPHATE
     Dosage: IF WEIGHT GREATER THAN 50KG: TAKE ONE OR TWO TA..., DURATION: 350 DAYS
     Route: 048
     Dates: start: 20230606, end: 20240520
  3. MIRTAZAPINE [Concomitant]
     Active Substance: MIRTAZAPINE
     Indication: Depressed mood
     Dosage: AT NIGHT
     Route: 048
     Dates: start: 20230606
  4. SERTRALINE [Concomitant]
     Active Substance: SERTRALINE HYDROCHLORIDE
     Route: 048
     Dates: start: 20240704
  5. ACETAMINOPHEN [Concomitant]
     Active Substance: ACETAMINOPHEN
     Route: 048
     Dates: start: 20240520
  6. POLYETHYLENE GLYCOL 3350\POTASSIUM CHLORIDE\SODIUM BICARBONATE\SODIUM [Concomitant]
     Active Substance: POLYETHYLENE GLYCOL 3350\POTASSIUM CHLORIDE\SODIUM BICARBONATE\SODIUM CHLORIDE
     Dosage: DISSOLVE IN HALF A GLASS
     Route: 048
     Dates: start: 20230606
  7. MIDODRINE HYDROCHLORIDE [Concomitant]
     Active Substance: MIDODRINE HYDROCHLORIDE
     Dosage: TIME INTERVAL: 0.33333333 DAYS: AT 8AM, 12PM ,
     Route: 048
     Dates: start: 20240618
  8. DIHYDROCODEINE [Concomitant]
     Active Substance: DIHYDROCODEINE
     Dosage: WHEN NECESSARY
     Route: 048
     Dates: start: 20240520

REACTIONS (2)
  - Anxiety [Unknown]
  - Suicidal ideation [Unknown]
